FAERS Safety Report 25242266 (Version 1)
Quarter: 2025Q2

REPORT INFORMATION
  Report Type: Report from Study
  Country: CA (occurrence: CA)
  Receive Date: 20250426
  Receipt Date: 20250426
  Transmission Date: 20250716
  Serious: Yes (Hospitalization)
  Sender: ABBVIE
  Company Number: CA-ABBVIE-6246411

PATIENT
  Age: 68 Year
  Sex: Male

DRUGS (1)
  1. SKYRIZI [Suspect]
     Active Substance: RISANKIZUMAB-RZAA
     Indication: Crohn^s disease
     Dosage: STARTING ON WEEK12 INJECT CONTENTS OF 1 CARTRIDGE 360MG/2.4ML
     Route: 058
     Dates: start: 20241001

REACTIONS (1)
  - Intestinal obstruction [Not Recovered/Not Resolved]
